FAERS Safety Report 25411180 (Version 1)
Quarter: 2025Q2

REPORT INFORMATION
  Report Type: Spontaneous
  Country: CA (occurrence: CA)
  Receive Date: 20250609
  Receipt Date: 20250609
  Transmission Date: 20250717
  Serious: Yes (Hospitalization, Other)
  Sender: TAKEDA
  Company Number: CA-TAKEDA-2025TUS051669

PATIENT
  Age: 51 Year
  Sex: Female

DRUGS (4)
  1. BRIGATINIB [Suspect]
     Active Substance: BRIGATINIB
     Indication: Lung adenocarcinoma stage III
     Dosage: 90 MILLIGRAM, QD
     Dates: start: 202106
  2. BRIGATINIB [Suspect]
     Active Substance: BRIGATINIB
     Dosage: 180 MILLIGRAM, QD
  3. BRIGATINIB [Suspect]
     Active Substance: BRIGATINIB
  4. OSIMERTINIB [Suspect]
     Active Substance: OSIMERTINIB
     Indication: Lung adenocarcinoma stage III

REACTIONS (12)
  - Pneumonitis [Recovered/Resolved]
  - Lung adenocarcinoma stage III [Unknown]
  - Hepatotoxicity [Recovered/Resolved]
  - Erythromelalgia [Unknown]
  - Skin fissures [Unknown]
  - Skin exfoliation [Unknown]
  - Hypertransaminasaemia [Unknown]
  - Myositis [Unknown]
  - Paronychia [Unknown]
  - Oesophageal disorder [Unknown]
  - Paraesthesia [Unknown]
  - Dyspnoea [Recovered/Resolved]

NARRATIVE: CASE EVENT DATE: 20210601
